FAERS Safety Report 6641158-3 (Version None)
Quarter: 2010Q1

REPORT INFORMATION
  Report Type: 
  Country: None (occurrence: None)
  Receive Date: 20100318
  Receipt Date: 20100309
  Transmission Date: 20100710
  Serious: Yes (Hospitalization)
  Sender: FDA-Public Use
  Company Number: US-BAXTER-2010BH005830

PATIENT
  Sex: Female

DRUGS (5)
  1. DIANEAL [Suspect]
     Indication: PERITONEAL DIALYSIS
     Route: 033
     Dates: start: 20030826, end: 20100104
  2. DIANEAL [Suspect]
     Route: 033
     Dates: start: 20100201
  3. DIANEAL [Suspect]
     Indication: PERITONEAL DIALYSIS
     Route: 033
     Dates: start: 20090101
  4. EXTRANEAL [Suspect]
     Indication: PERITONEAL DIALYSIS
     Route: 033
     Dates: start: 20100201
  5. EXTRANEAL [Suspect]
     Route: 033
     Dates: start: 20030101, end: 20100104

REACTIONS (2)
  - CONSTIPATION [None]
  - FLUID OVERLOAD [None]
